FAERS Safety Report 26142901 (Version 1)
Quarter: 2025Q4

REPORT INFORMATION
  Report Type: Report from Study
  Country: CN (occurrence: CN)
  Receive Date: 20251211
  Receipt Date: 20251211
  Transmission Date: 20260118
  Serious: Yes (Other)
  Sender: ROCHE
  Company Number: CN-ROCHE-10000452679

PATIENT
  Age: 66 Year
  Sex: Male

DRUGS (2)
  1. ATEZOLIZUMAB [Suspect]
     Active Substance: ATEZOLIZUMAB
     Indication: Hepatic cancer
     Dosage: STRENGTH: 1200MG/20ML
     Route: 042
     Dates: start: 20250929
  2. BEVACIZUMAB [Suspect]
     Active Substance: BEVACIZUMAB
     Indication: Hepatic cancer
     Dosage: STRENGTH: 100MG/VIAL
     Route: 042
     Dates: start: 20250929

REACTIONS (2)
  - Platelet count decreased [Unknown]
  - Melaena [Unknown]
